FAERS Safety Report 8622754-0 (Version None)
Quarter: 2012Q3

REPORT INFORMATION
  Report Type: 
  Country: None (occurrence: None)
  Receive Date: 20120827
  Receipt Date: 20120801
  Transmission Date: 20120928
  Serious: No
  Sender: FDA-Public Use
  Company Number: US-JNJFOC-20120802172

PATIENT
  Sex: Male

DRUGS (3)
  1. INVEGA SUSTENNA [Suspect]
     Route: 030
  2. INVEGA SUSTENNA [Suspect]
     Route: 030
  3. INVEGA SUSTENNA [Suspect]
     Indication: PRODUCT USED FOR UNKNOWN INDICATION
     Route: 030

REACTIONS (2)
  - SLUGGISHNESS [None]
  - FEELING ABNORMAL [None]
